FAERS Safety Report 4390486-3 (Version None)
Quarter: 2004Q2

REPORT INFORMATION
  Report Type: 
  Country: None (occurrence: None)
  Receive Date: 20040630
  Receipt Date: 20040623
  Transmission Date: 20050107
  Serious: Yes (Hospitalization)
  Sender: FDA-Public Use
  Company Number: HQWYE647624JUN04

PATIENT
  Age: 4 Year
  Sex: Male

DRUGS (1)
  1. CHILDREN'S ADVIL [Suspect]
     Route: 048
     Dates: start: 20040512, end: 20040515

REACTIONS (5)
  - COAGULOPATHY [None]
  - DEPRESSED LEVEL OF CONSCIOUSNESS [None]
  - HAEMODYNAMIC INSTABILITY [None]
  - NECROTISING FASCIITIS [None]
  - STREPTOCOCCAL INFECTION [None]
